FAERS Safety Report 6437300-X (Version None)
Quarter: 2009Q4

REPORT INFORMATION
  Report Type: 
  Country: None (occurrence: None)
  Receive Date: 20091110
  Receipt Date: 20080804
  Transmission Date: 20100525
  Serious: Yes (Other)
  Sender: FDA-Public Use
  Company Number: AEUSA200800163

PATIENT
  Age: 32 Year
  Sex: Male
  Weight: 83.0083 kg

DRUGS (4)
  1. GAMUNEX [Suspect]
     Indication: GUILLAIN-BARRE SYNDROME
     Dosage: 121.5 GM; TOTAL; IV
     Route: 042
     Dates: start: 20080708, end: 20080719
  2. GAMUNEX [Suspect]
  3. GAMUNEX [Suspect]
  4. GAMUNEX [Suspect]

REACTIONS (3)
  - CYTOMEGALOVIRUS HEPATITIS [None]
  - CYTOMEGALOVIRUS INFECTION [None]
  - LEUKOPENIA [None]
